FAERS Safety Report 16035142 (Version 2)
Quarter: 2019Q2

REPORT INFORMATION
  Report Type: Spontaneous
  Country: US (occurrence: US)
  Receive Date: 20190305
  Receipt Date: 20190403
  Transmission Date: 20190711
  Serious: No
  Sender: FDA-Public Use
  Company Number: US-009507513-1903USA000027

PATIENT
  Sex: Female
  Weight: 56.7 kg

DRUGS (1)
  1. HYZAAR [Suspect]
     Active Substance: HYDROCHLOROTHIAZIDE\LOSARTAN POTASSIUM
     Indication: BLOOD PRESSURE MEASUREMENT
     Dosage: 100-25 MG TABLET TAKE HALF TABLET
     Route: 048
     Dates: start: 201806

REACTIONS (3)
  - Hypotension [Unknown]
  - Therapeutic product effect increased [Unknown]
  - Wrong technique in product usage process [Unknown]
